FAERS Safety Report 12819465 (Version 1)
Quarter: 2016Q4

REPORT INFORMATION
  Report Type: Report from Study
  Country: US (occurrence: US)
  Receive Date: 20161006
  Receipt Date: 20161006
  Transmission Date: 20170207
  Serious: Yes (Other)
  Sender: FDA-Public Use
  Company Number: US-AMGEN-USASL2016006848

PATIENT
  Sex: Female

DRUGS (1)
  1. PROLIA [Suspect]
     Active Substance: DENOSUMAB
     Indication: OSTEOPOROSIS POSTMENOPAUSAL
     Dosage: UNK
     Route: 065
     Dates: start: 2014

REACTIONS (6)
  - Jaw disorder [Unknown]
  - Mastication disorder [Unknown]
  - Atrial fibrillation [Unknown]
  - Neck pain [Unknown]
  - Headache [Unknown]
  - Scoliosis [Unknown]

NARRATIVE: CASE EVENT DATE: 2015
